FAERS Safety Report 25944712 (Version 2)
Quarter: 2025Q4

REPORT INFORMATION
  Report Type: Report from Study
  Country: US (occurrence: US)
  Receive Date: 20251021
  Receipt Date: 20251029
  Transmission Date: 20260118
  Serious: No
  Sender: ABBVIE
  Company Number: US-ABBVIE-6508045

PATIENT
  Age: 44 Year
  Sex: Male
  Weight: 106 kg

DRUGS (3)
  1. RINVOQ [Suspect]
     Active Substance: UPADACITINIB
     Indication: Crohn^s disease
     Route: 048
     Dates: start: 20240603
  2. PROTONIX [Concomitant]
     Active Substance: PANTOPRAZOLE SODIUM
     Indication: Gastrooesophageal reflux disease
  3. HYDROCHLOROTHIAZIDE [Concomitant]
     Active Substance: HYDROCHLOROTHIAZIDE
     Indication: Blood pressure management

REACTIONS (7)
  - White blood cell count decreased [Unknown]
  - Gastrointestinal inflammation [Not Recovered/Not Resolved]
  - Crohn^s disease [Recovered/Resolved]
  - Unevaluable event [Unknown]
  - Therapeutic product effect decreased [Not Recovered/Not Resolved]
  - Influenza [Recovered/Resolved]
  - Haemoglobin abnormal [Unknown]

NARRATIVE: CASE EVENT DATE: 20250201
